FAERS Safety Report 8480421-0 (Version None)
Quarter: 2012Q3

REPORT INFORMATION
  Report Type: 
  Country: None (occurrence: None)
  Receive Date: 20120702
  Receipt Date: 20120620
  Transmission Date: 20120928
  Serious: Yes (Other)
  Sender: FDA-Public Use
  Company Number: JP-GE HEALTHCARE MEDICAL DIAGNOSTICS-MSTR-NO-1206S-0042

PATIENT
  Age: 51 Year
  Sex: Female

DRUGS (1)
  1. METASTRON [Suspect]
     Indication: METASTATIC PAIN
     Route: 042

REACTIONS (2)
  - PANCYTOPENIA [None]
  - ACUTE PROMYELOCYTIC LEUKAEMIA [None]
